FAERS Safety Report 23028721 (Version 1)
Quarter: 2023Q4

REPORT INFORMATION
  Report Type: Spontaneous
  Country: US (occurrence: US)
  Receive Date: 20231004
  Receipt Date: 20231004
  Transmission Date: 20240110
  Serious: Yes (Life-Threatening, Hospitalization, Other)
  Sender: FDA-Public Use
  Company Number: US-MLMSERVICE-20230925-4563978-1

PATIENT
  Sex: Male

DRUGS (3)
  1. PREDNISOLONE [Suspect]
     Active Substance: PREDNISOLONE
     Indication: Uveitis
     Route: 047
  2. PREDNISONE [Suspect]
     Active Substance: PREDNISONE
     Indication: Uveitis
     Route: 048
  3. PREDNISONE [Suspect]
     Active Substance: PREDNISONE
     Indication: Uveitis
     Route: 048

REACTIONS (1)
  - Strongyloidiasis [Recovered/Resolved]
